FAERS Safety Report 6588720-4 (Version None)
Quarter: 2010Q1

REPORT INFORMATION
  Report Type: 
  Country: None (occurrence: None)
  Receive Date: 20100212
  Receipt Date: 20091218
  Transmission Date: 20100710
  Serious: Yes (Hospitalization)
  Sender: FDA-Public Use
  Company Number: 003542

PATIENT
  Sex: Female

DRUGS (9)
  1. ROTIGOTINE (SPM962 (ROTIGOTINE)) [Suspect]
     Indication: PARKINSON'S DISEASE
     Dosage: 4.5 MG  TRANSDERMAL; 9 MG TRANSDERMAL; 13.5 MG TRANSDERMAL; 18 MG TRANSDERMAL; 22.5 MG TRANSDERMAL
     Route: 062
     Dates: start: 20091117, end: 20091124
  2. ROTIGOTINE (SPM962 (ROTIGOTINE)) [Suspect]
     Indication: PARKINSON'S DISEASE
     Dosage: 4.5 MG  TRANSDERMAL; 9 MG TRANSDERMAL; 13.5 MG TRANSDERMAL; 18 MG TRANSDERMAL; 22.5 MG TRANSDERMAL
     Route: 062
     Dates: start: 20091124, end: 20091201
  3. ROTIGOTINE (SPM962 (ROTIGOTINE)) [Suspect]
     Indication: PARKINSON'S DISEASE
     Dosage: 4.5 MG  TRANSDERMAL; 9 MG TRANSDERMAL; 13.5 MG TRANSDERMAL; 18 MG TRANSDERMAL; 22.5 MG TRANSDERMAL
     Route: 062
     Dates: start: 20091204, end: 20091208
  4. ROTIGOTINE (SPM962 (ROTIGOTINE)) [Suspect]
     Indication: PARKINSON'S DISEASE
     Dosage: 4.5 MG  TRANSDERMAL; 9 MG TRANSDERMAL; 13.5 MG TRANSDERMAL; 18 MG TRANSDERMAL; 22.5 MG TRANSDERMAL
     Route: 062
     Dates: start: 20091208, end: 20091214
  5. ROTIGOTINE (SPM962 (ROTIGOTINE)) [Suspect]
     Indication: PARKINSON'S DISEASE
     Dosage: 4.5 MG  TRANSDERMAL; 9 MG TRANSDERMAL; 13.5 MG TRANSDERMAL; 18 MG TRANSDERMAL; 22.5 MG TRANSDERMAL
     Route: 062
     Dates: start: 20091214, end: 20091221
  6. CARBIDOPA-LEVODOPA [Concomitant]
  7. SELEGILINE HYDROCHLORIDE [Concomitant]
  8. ENTACAPONE [Concomitant]
  9. FAMOTIDINE [Concomitant]

REACTIONS (4)
  - ANAEMIA [None]
  - BALANCE DISORDER [None]
  - GASTRIC ULCER HAEMORRHAGE [None]
  - GASTRITIS ATROPHIC [None]
